FAERS Safety Report 17871747 (Version 1)
Quarter: 2020Q2

REPORT INFORMATION
  Report Type: Spontaneous
  Country: US (occurrence: US)
  Receive Date: 20200608
  Receipt Date: 20200608
  Transmission Date: 20200714
  Serious: Yes (Other)
  Sender: FDA-Public Use
  Company Number: US-AKORN PHARMACEUTICALS-2020AKN00711

PATIENT
  Age: 15 Year
  Sex: Female

DRUGS (2)
  1. MYORISAN [Suspect]
     Active Substance: ISOTRETINOIN
     Indication: ACNE CYSTIC
     Dosage: UNK
     Route: 048
     Dates: start: 20200114, end: 20200526
  2. MUPIROCIN. [Concomitant]
     Active Substance: MUPIROCIN

REACTIONS (4)
  - Insomnia [Unknown]
  - Mood altered [Unknown]
  - Depressed mood [Unknown]
  - Self-injurious ideation [Unknown]

NARRATIVE: CASE EVENT DATE: 2020
